FAERS Safety Report 11094075 (Version 1)
Quarter: 2015Q2

REPORT INFORMATION
  Report Type: Spontaneous
  Country: FR (occurrence: FR)
  Receive Date: 20150506
  Receipt Date: 20150506
  Transmission Date: 20150821
  Serious: Yes (Life-Threatening)
  Sender: FDA-Public Use
  Company Number: FR-BAYER-2015-180576

PATIENT
  Age: 28 Year
  Sex: Female

DRUGS (1)
  1. ADALAT [Suspect]
     Active Substance: NIFEDIPINE
     Indication: PREMATURE DELIVERY
     Dosage: 20 MGX3 IN 1 TAKE PER OS
     Route: 048
     Dates: start: 20150401

REACTIONS (1)
  - Cardiac arrest [Recovered/Resolved]

NARRATIVE: CASE EVENT DATE: 20150401
